FAERS Safety Report 6262310-5 (Version None)
Quarter: 2009Q3

REPORT INFORMATION
  Report Type: 
  Country: None (occurrence: None)
  Receive Date: 20090709
  Receipt Date: 20090706
  Transmission Date: 20100115
  Serious: Yes (Death)
  Sender: FDA-Public Use
  Company Number: US-BRISTOL-MYERS SQUIBB COMPANY-14691851

PATIENT
  Age: 70 Year
  Sex: Male

DRUGS (2)
  1. COUMADIN [Suspect]
     Indication: THROMBOSIS
     Dosage: TAKEN 3YRS AGO
  2. LOVENOX [Suspect]

REACTIONS (3)
  - DRUG INEFFECTIVE [None]
  - PANCREATIC CARCINOMA METASTATIC [None]
  - THROMBOSIS [None]
